FAERS Safety Report 10008011 (Version 3)
Quarter: 2014Q1

REPORT INFORMATION
  Report Type: Spontaneous
  Country: US (occurrence: US)
  Receive Date: 20140313
  Receipt Date: 20140321
  Transmission Date: 20141002
  Serious: Yes (Death)
  Sender: FDA-Public Use
  Company Number: US-JNJFOC-20140306510

PATIENT
  Age: 67 Year
  Sex: Female
  Weight: 74 kg

DRUGS (7)
  1. XARELTO [Suspect]
     Indication: PULMONARY EMBOLISM
     Route: 048
     Dates: start: 20131012
  2. ENOXAPARIN SODIUM [Suspect]
     Indication: ANTICOAGULATION DRUG LEVEL BELOW THERAPEUTIC
     Route: 065
  3. ENOXAPARIN SODIUM [Suspect]
     Indication: ANTICOAGULATION DRUG LEVEL BELOW THERAPEUTIC
     Route: 065
  4. ENOXAPARIN SODIUM [Suspect]
     Indication: PULMONARY EMBOLISM
     Route: 065
  5. ENOXAPARIN SODIUM [Suspect]
     Indication: PULMONARY EMBOLISM
     Route: 065
  6. ASPIRIN [Suspect]
     Indication: STENT PLACEMENT
     Route: 065
  7. ASPIRIN [Suspect]
     Indication: CORONARY ARTERY DISEASE
     Route: 065

REACTIONS (4)
  - Subdural haemorrhage [Fatal]
  - Brain stem haemorrhage [Fatal]
  - Haematemesis [Unknown]
  - Apnoea [Unknown]
